FAERS Safety Report 11999482 (Version 1)
Quarter: 2016Q1

REPORT INFORMATION
  Report Type: Spontaneous
  Country: FR (occurrence: FR)
  Receive Date: 20160204
  Receipt Date: 20160204
  Transmission Date: 20160526
  Serious: Yes (Life-Threatening, Hospitalization)
  Sender: FDA-Public Use
  Company Number: FR-009507513-1602FRA001517

PATIENT
  Age: 76 Year
  Sex: Male

DRUGS (5)
  1. JANUVIA [Suspect]
     Active Substance: SITAGLIPTIN PHOSPHATE
     Indication: DIABETES MELLITUS
     Dosage: 50MG, 1 TABLET  QD
     Route: 048
     Dates: end: 20151109
  2. KARDEGIC [Suspect]
     Active Substance: ASPIRIN LYSINE
     Dosage: 75 MG, 1 DF QD AT MIDDAY
     Route: 048
     Dates: end: 20151109
  3. ATORVASTATIN [Suspect]
     Active Substance: ATORVASTATIN
     Indication: HYPERCHOLESTEROLAEMIA
     Dosage: 10 MG, QAM
     Route: 048
     Dates: end: 20151109
  4. LOSARTAN POTASSIUM. [Concomitant]
     Active Substance: LOSARTAN POTASSIUM
     Indication: HYPERTENSION
     Dosage: 10 MG, QAM
     Route: 048
     Dates: end: 20151109
  5. LERCANIDIPINE [Concomitant]
     Active Substance: LERCANIDIPINE
     Indication: HYPERTENSION
     Dosage: 10 MG, QAM
     Route: 048
     Dates: end: 20151109

REACTIONS (1)
  - Cerebellar haematoma [Unknown]

NARRATIVE: CASE EVENT DATE: 20151109
